FAERS Safety Report 7416555-9 (Version None)
Quarter: 2011Q2

REPORT INFORMATION
  Report Type: 
  Country: None (occurrence: None)
  Receive Date: 20110415
  Receipt Date: 20110405
  Transmission Date: 20111010
  Serious: Yes (Hospitalization, Other)
  Sender: FDA-Public Use
  Company Number: US-AMGEN-USASP2011018037

PATIENT
  Age: 52 Year
  Sex: Male

DRUGS (8)
  1. ASPIRIN [Concomitant]
  2. FISH OIL [Concomitant]
  3. CALCIUM [Concomitant]
  4. CELEBREX [Concomitant]
  5. ENBREL [Suspect]
     Indication: RHEUMATOID ARTHRITIS
     Dosage: 50 MG, QWK
     Dates: start: 20100701, end: 20110221
  6. FOLIC ACID [Concomitant]
  7. METHOTREXATE [Concomitant]
  8. PREDNISONE [Concomitant]

REACTIONS (7)
  - FALL [None]
  - LOSS OF CONSCIOUSNESS [None]
  - HYPOAESTHESIA [None]
  - MOBILITY DECREASED [None]
  - TREMOR [None]
  - PARAESTHESIA [None]
  - LIVER FUNCTION TEST ABNORMAL [None]
